FAERS Safety Report 11025444 (Version 1)
Quarter: 2015Q2

REPORT INFORMATION
  Report Type: Spontaneous
  Country: US (occurrence: None)
  Receive Date: 20150413
  Receipt Date: 20150413
  Transmission Date: 20150821
  Serious: Yes (Other)
  Sender: FDA-Public Use
  Company Number: None

PATIENT
  Age: 29 Year
  Sex: Male
  Weight: 67 kg

DRUGS (3)
  1. PIPERACILLIN/TAZOBACTAM [Suspect]
     Active Substance: PIPERACILLIN SODIUM\TAZOBACTAM SODIUM
     Indication: FEBRILE NEUTROPENIA
     Dosage: TREATMENT DATES?12/13/15 TO 12/16/15
     Route: 042
  2. VANCOMYCIN [Suspect]
     Active Substance: VANCOMYCIN
     Indication: BACTERAEMIA
     Dosage: 1750 MG IV THEN 1500 MG IV EVERY 8 HOURS ?TREATMENT DATES OR DURATION?12/14/15 AND 12/15/15?
     Route: 042
  3. CYCLOSPORINE. [Concomitant]
     Active Substance: CYCLOSPORINE

REACTIONS (6)
  - Musculoskeletal pain [None]
  - Chills [None]
  - Blood culture positive [None]
  - Cough [None]
  - Neutropenia [None]
  - Staphylococcal bacteraemia [None]

NARRATIVE: CASE EVENT DATE: 20141215
